FAERS Safety Report 6094936-6 (Version None)
Quarter: 2009Q1

REPORT INFORMATION
  Report Type: 
  Country: None (occurrence: None)
  Receive Date: 20090227
  Receipt Date: 20090225
  Transmission Date: 20090719
  Serious: Yes (Hospitalization)
  Sender: FDA-Public Use
  Company Number: AU-BRISTOL-MYERS SQUIBB COMPANY-14520803

PATIENT
  Age: 85 Year
  Sex: Female

DRUGS (6)
  1. IRBESARTAN [Suspect]
  2. BISOLVON [Concomitant]
  3. NEXIUM [Concomitant]
  4. SALOFALK [Concomitant]
  5. VENTOLIN [Concomitant]
  6. CARTIA XT [Concomitant]

REACTIONS (1)
  - HYPONATRAEMIA [None]
